FAERS Safety Report 8577269-5 (Version None)
Quarter: 2012Q3

REPORT INFORMATION
  Report Type: 
  Country: None (occurrence: None)
  Receive Date: 20120807
  Receipt Date: 20120605
  Transmission Date: 20120928
  Serious: No
  Sender: FDA-Public Use
  Company Number: US-COVIDIEN/TYCO HEALTHCARE/MALLINCKRODT-T201202503

PATIENT
  Sex: Female

DRUGS (3)
  1. PENNSAID [Suspect]
     Indication: NEUROMA
     Dosage: QID
     Dates: start: 20120501, end: 20120605
  2. ESTRADIOL [Concomitant]
     Dosage: 1 MG
  3. MULTIVITAMIN                       /00097801/ [Concomitant]
     Dosage: UNK

REACTIONS (2)
  - ERYTHEMA [None]
  - FLUSHING [None]
